FAERS Safety Report 5964687-4 (Version None)
Quarter: 2008Q4

REPORT INFORMATION
  Report Type: 
  Country: None (occurrence: None)
  Receive Date: 20081119
  Receipt Date: 20080904
  Transmission Date: 20090506
  Serious: Yes (Other)
  Sender: FDA-Public Use
  Company Number: 2008S1016499

PATIENT
  Sex: Male

DRUGS (3)
  1. SIMVASTATIN [Suspect]
     Indication: TYPE IV HYPERLIPIDAEMIA
     Dosage: 40 MG
  2. PRAVASTATIN [Suspect]
     Indication: TYPE IV HYPERLIPIDAEMIA
     Dosage: 20 MG
  3. ATORVASTATIN CALCIUM [Suspect]
     Indication: TYPE IV HYPERLIPIDAEMIA

REACTIONS (2)
  - BLOOD CREATINE PHOSPHOKINASE INCREASED [None]
  - MYOGLOBIN BLOOD INCREASED [None]
